FAERS Safety Report 9761434 (Version 1)
Quarter: 2013Q3

REPORT INFORMATION
  Report Type: Spontaneous
  Country: FR (occurrence: None)
  Receive Date: 20130816
  Receipt Date: 20130816
  Transmission Date: 20140515
  Serious: Yes (Other)
  Sender: FDA-Public Use
  Company Number: EUS-2013-00459

PATIENT
  Age: 4 Year
  Sex: Female
  Weight: 17 kg

DRUGS (5)
  1. ERWINASE (ASPARAGINASE) [Suspect]
     Indication: ACUTE LYMPHOCYTIC LEUKAEMIA
     Dosage: 1 CYCLE
     Route: 042
     Dates: start: 20130514, end: 20130524
  2. POLARAMINE (DEXCHLORPHENIRAMINE MALEATE) [Concomitant]
  3. SOLUMEDROL (METHYLPREDNISOLONE SODIUM SUCCINATE) [Concomitant]
  4. VINCRISTINE [Concomitant]
  5. METHOTREXATE [Concomitant]

REACTIONS (8)
  - Vomiting [None]
  - Tremor [None]
  - Rash macular [None]
  - Pallor [None]
  - Cyanosis [None]
  - Pruritus [None]
  - Tachycardia [None]
  - Hypotension [None]
